FAERS Safety Report 24207605 (Version 1)
Quarter: 2024Q3

REPORT INFORMATION
  Report Type: Spontaneous
  Country: CN (occurrence: CN)
  Receive Date: 20240814
  Receipt Date: 20240814
  Transmission Date: 20241017
  Serious: Yes (Other)
  Sender: JOHNSON AND JOHNSON
  Company Number: CN-JNJFOC-20240819432

PATIENT
  Age: 59 Year
  Sex: Male
  Weight: 80 kg

DRUGS (4)
  1. CHILDRENS MOTRIN [Suspect]
     Active Substance: IBUPROFEN
     Indication: Respiratory tract infection
     Dosage: 15ML IF NECESSARY
     Route: 048
     Dates: start: 20240727, end: 20240727
  2. CHILDRENS MOTRIN [Suspect]
     Active Substance: IBUPROFEN
     Indication: Pyrexia
  3. HERBALS\MENTHOL [Suspect]
     Active Substance: HERBALS\MENTHOL
     Indication: Respiratory tract infection
     Dosage: 1 SACHET
     Route: 048
     Dates: start: 20240727, end: 20240727
  4. HERBALS\MENTHOL [Suspect]
     Active Substance: HERBALS\MENTHOL
     Indication: Pyrexia

REACTIONS (2)
  - Off label use [Unknown]
  - Drug hypersensitivity [Not Recovered/Not Resolved]

NARRATIVE: CASE EVENT DATE: 20240727
